FAERS Safety Report 6083138-5 (Version None)
Quarter: 2009Q1

REPORT INFORMATION
  Report Type: 
  Country: None (occurrence: None)
  Receive Date: 20090213
  Receipt Date: 20090213
  Transmission Date: 20090719
  Serious: Yes (Hospitalization)
  Sender: FDA-Public Use
  Company Number: None

PATIENT
  Age: 63 Year
  Sex: Female
  Weight: 72.7 kg

DRUGS (1)
  1. NORVASC [Suspect]
     Indication: BLOOD PRESSURE SYSTOLIC
     Dosage: PO Q DAY
     Route: 048
     Dates: start: 20090201, end: 20090203

REACTIONS (3)
  - BLOOD GLUCOSE INCREASED [None]
  - CHEST PAIN [None]
  - MALAISE [None]
